FAERS Safety Report 9415703 (Version 2)
Quarter: 2013Q3

REPORT INFORMATION
  Report Type: Spontaneous
  Country: US (occurrence: US)
  Receive Date: 20130723
  Receipt Date: 20130807
  Transmission Date: 20140515
  Serious: Yes (Other)
  Sender: FDA-Public Use
  Company Number: US-B.I. PHARMACEUTICALS,INC./RIDGEFIELD-2013-BI-21193BP

PATIENT
  Age: 84 Year
  Sex: Female
  Weight: 54 kg

DRUGS (6)
  1. MICARDIS [Suspect]
     Indication: HYPERTENSION
     Dosage: 80 MG
     Route: 048
     Dates: start: 20121025, end: 20121221
  2. CATAPRES [Suspect]
     Indication: HYPERTENSION
     Dosage: 0.1 MG
     Route: 048
     Dates: start: 2012
  3. ALLEGRA [Concomitant]
     Indication: SEASONAL ALLERGY
     Route: 048
  4. LISINOPRIL [Concomitant]
     Indication: HYPERTENSION
     Route: 048
  5. PREVACID [Concomitant]
     Route: 048
  6. CARDURA [Concomitant]
     Indication: HYPERTENSION
     Dosage: 1 MG
     Route: 048

REACTIONS (2)
  - Uterine cancer [Not Recovered/Not Resolved]
  - Fall [Recovered/Resolved]
